FAERS Safety Report 8788653 (Version 3)
Quarter: 2012Q4

REPORT INFORMATION
  Report Type: 
  Country: IT (occurrence: IT)
  Receive Date: 20120915
  Receipt Date: 20121012
  Transmission Date: 20130627
  Serious: Yes (Other)
  Sender: FDA-Public Use
  Company Number: IT-AMGEN-ITASP2012056943

PATIENT
  Age: 69 Year
  Sex: Male

DRUGS (8)
  1. ARANESP [Suspect]
     Indication: NEPHROGENIC ANAEMIA
     Dosage: 20 mug, qwk
     Route: 058
     Dates: start: 20120715, end: 20120817
  2. LASIX                              /00032601/ [Concomitant]
     Dosage: 25 mg, UNK
     Route: 048
  3. CARDIOASPIRIN [Concomitant]
     Dosage: 100 mg, UNK
     Route: 048
  4. TRIATEC                            /00116401/ [Concomitant]
     Dosage: 10 mg, UNK
     Route: 048
  5. ZYLORIC [Concomitant]
     Dosage: 300 mg, UNK
     Route: 048
  6. KARVEA [Concomitant]
     Dosage: 300 mg, UNK
     Route: 048
  7. PANTOPAN [Concomitant]
     Dosage: 40 mg, UNK
     Route: 048
  8. KAYEXALATE [Concomitant]

REACTIONS (3)
  - Haematemesis [Recovered/Resolved]
  - Pain in extremity [Recovered/Resolved]
  - Oedema peripheral [Recovered/Resolved]
